FAERS Safety Report 6590391-8 (Version None)
Quarter: 2010Q1

REPORT INFORMATION
  Report Type: 
  Country: None (occurrence: None)
  Receive Date: 20100219
  Receipt Date: 20100210
  Transmission Date: 20100710
  Serious: Yes (Hospitalization, Other)
  Sender: FDA-Public Use
  Company Number: JP-ROCHE-660282

PATIENT
  Sex: Male
  Weight: 79.1 kg

DRUGS (19)
  1. TOCILIZUMAB [Suspect]
     Indication: CASTLEMAN'S DISEASE
     Route: 041
     Dates: start: 20090619, end: 20090811
  2. TOCILIZUMAB [Suspect]
     Route: 041
     Dates: start: 20090818, end: 20090901
  3. TOCILIZUMAB [Suspect]
     Route: 041
     Dates: start: 20090915, end: 20091207
  4. TOCILIZUMAB [Suspect]
     Route: 041
     Dates: start: 20091215
  5. PREDONINE [Suspect]
     Indication: CASTLEMAN'S DISEASE
     Dosage: NOTE: 10MG X 115MG X 2.
     Route: 048
     Dates: end: 20090407
  6. PREDONINE [Suspect]
     Dosage: NOTE: 7.5MG?175MG?2
     Route: 048
     Dates: start: 20090408, end: 20090512
  7. PREDONINE [Suspect]
     Route: 048
     Dates: start: 20090513, end: 20090824
  8. PREDONINE [Suspect]
     Route: 048
     Dates: start: 20090825, end: 20090908
  9. PREDONINE [Suspect]
     Dosage: NOTE: 20MG X 1215MG X 2. STOP DATE REPORTED AS 2009.
     Route: 048
     Dates: start: 20090909
  10. PREDONINE [Suspect]
     Dosage: NOTE: AMOUNT 3
     Route: 048
     Dates: start: 20090101, end: 20091213
  11. PREDONINE [Suspect]
     Route: 048
     Dates: start: 20091214, end: 20091220
  12. PREDONINE [Suspect]
     Dosage: NOTE: DIVIDED INTO DOSES
     Route: 048
     Dates: start: 20091221, end: 20100104
  13. PREDONINE [Suspect]
     Dosage: NOTE: DIVIDED INTO DOSES
     Route: 048
     Dates: start: 20100105
  14. NEORAL [Suspect]
     Indication: CASTLEMAN'S DISEASE
     Dosage: ORAL FORMULATION (NOT OTHERWISE SPECIFIED)
     Route: 048
     Dates: end: 20090706
  15. NEORAL [Suspect]
     Route: 048
     Dates: start: 20090707, end: 20090728
  16. NEORAL [Suspect]
     Route: 048
     Dates: start: 20090729, end: 20090811
  17. NEORAL [Suspect]
     Dosage: STOP DATE REPORTED AS 2009
     Route: 048
     Dates: start: 20090812
  18. NEORAL [Suspect]
     Route: 048
     Dates: start: 20090101, end: 20091213
  19. ENDOXAN [Concomitant]
     Route: 048
     Dates: start: 20100119

REACTIONS (9)
  - ASCITES [None]
  - DIABETES MELLITUS [None]
  - DIARRHOEA [None]
  - ENTEROCOLITIS [None]
  - HEPATIC FUNCTION ABNORMAL [None]
  - HYPOGAMMAGLOBULINAEMIA [None]
  - PLATELET COUNT DECREASED [None]
  - PRURITUS [None]
  - SEPSIS [None]
